FAERS Safety Report 6378580-9 (Version None)
Quarter: 2009Q3

REPORT INFORMATION
  Report Type: 
  Country: None (occurrence: None)
  Receive Date: 20090928
  Receipt Date: 20090916
  Transmission Date: 20100115
  Serious: Yes (Other)
  Sender: FDA-Public Use
  Company Number: US-BAYER-200930162NA

PATIENT
  Age: 24 Year
  Sex: Female
  Weight: 54 kg

DRUGS (2)
  1. MIRENA [Suspect]
     Indication: CONTRACEPTION
     Dosage: CONTINUOUS
     Route: 015
     Dates: start: 20080411
  2. VITAMIN TAB [Concomitant]
     Indication: POSTPARTUM STATE

REACTIONS (7)
  - ABDOMINAL PAIN [None]
  - CERVICAL DYSPLASIA [None]
  - DYSMENORRHOEA [None]
  - NAUSEA [None]
  - PELVIC INFLAMMATORY DISEASE [None]
  - VAGINITIS BACTERIAL [None]
  - VOMITING [None]
